FAERS Safety Report 20790728 (Version 1)
Quarter: 2022Q2

REPORT INFORMATION
  Report Type: Other
  Country: US (occurrence: US)
  Receive Date: 20220505
  Receipt Date: 20220505
  Transmission Date: 20220721
  Serious: Yes (Hospitalization)
  Sender: FDA-Public Use
  Company Number: US-HLS-202200330

PATIENT
  Age: 27 Year
  Sex: Male

DRUGS (12)
  1. CLOZAPINE [Suspect]
     Active Substance: CLOZAPINE
     Indication: Schizoaffective disorder
     Dosage: APPROXIMATED MINIMUM THERAPEUTIC DOSE WAS 119 MG/DAY,
     Route: 065
  2. IBUPROFEN [Concomitant]
     Active Substance: IBUPROFEN
     Indication: Product used for unknown indication
     Route: 065
  3. HALOPERIDOL [Concomitant]
     Active Substance: HALOPERIDOL
     Indication: Product used for unknown indication
     Route: 065
  4. LORAZEPAM [Concomitant]
     Active Substance: LORAZEPAM
     Indication: Product used for unknown indication
     Route: 065
  5. LORAZEPAM [Concomitant]
     Active Substance: LORAZEPAM
     Indication: Product used for unknown indication
     Route: 065
  6. LORAZEPAM [Concomitant]
     Active Substance: LORAZEPAM
     Indication: Product used for unknown indication
     Route: 065
  7. DIPHENHYDRAMINE [Concomitant]
     Active Substance: DIPHENHYDRAMINE
     Indication: Product used for unknown indication
     Route: 065
  8. CHLORPROMAZINE [Concomitant]
     Active Substance: CHLORPROMAZINE
     Indication: Product used for unknown indication
     Route: 065
  9. ZIPRASIDONE [Concomitant]
     Active Substance: ZIPRASIDONE
     Indication: Product used for unknown indication
     Route: 065
  10. BENZTROPINE [Concomitant]
     Active Substance: BENZTROPINE
     Indication: Product used for unknown indication
     Route: 065
  11. LITHIUM [Concomitant]
     Active Substance: LITHIUM
     Indication: Product used for unknown indication
     Route: 065
  12. QUETIAPINE [Concomitant]
     Active Substance: QUETIAPINE
     Indication: Product used for unknown indication
     Route: 065

REACTIONS (23)
  - Pericarditis [Unknown]
  - Bradycardia [Unknown]
  - Myocarditis [Unknown]
  - C-reactive protein increased [Unknown]
  - Malaise [Recovered/Resolved]
  - Depressed level of consciousness [Unknown]
  - Drug reaction with eosinophilia and systemic symptoms [Unknown]
  - Eosinophilia [Unknown]
  - Hallucination [Recovering/Resolving]
  - Headache [Unknown]
  - Hypotension [Unknown]
  - Chest pain [Recovered/Resolved]
  - Schizophrenia [Recovering/Resolving]
  - Leukocytosis [Unknown]
  - Dizziness [Recovered/Resolved]
  - Rash maculo-papular [Unknown]
  - Nausea [Unknown]
  - Electrocardiogram T wave abnormal [Unknown]
  - Pallor [Unknown]
  - Psychiatric decompensation [Recovering/Resolving]
  - Sinus tachycardia [Unknown]
  - Skin infection [Recovered/Resolved]
  - Syncope [Unknown]
